FAERS Safety Report 24730624 (Version 1)
Quarter: 2024Q4

REPORT INFORMATION
  Report Type: Spontaneous
  Country: US (occurrence: US)
  Receive Date: 20241213
  Receipt Date: 20241213
  Transmission Date: 20250114
  Serious: No
  Sender: AMARIN
  Company Number: US-Amarin Pharma  Inc-2024AMR000531

PATIENT
  Sex: Male

DRUGS (2)
  1. VASCEPA [Suspect]
     Active Substance: ICOSAPENT ETHYL
     Indication: Product used for unknown indication
     Dates: start: 2021, end: 2024
  2. VASCEPA [Suspect]
     Active Substance: ICOSAPENT ETHYL
     Dates: start: 2024

REACTIONS (3)
  - Accidental underdose [Unknown]
  - Poor quality product administered [Unknown]
  - Product physical issue [Unknown]
